FAERS Safety Report 13725414 (Version 1)
Quarter: 2017Q3

REPORT INFORMATION
  Report Type: Spontaneous
  Country: FR (occurrence: FR)
  Receive Date: 20170707
  Receipt Date: 20170707
  Transmission Date: 20171127
  Serious: Yes (Other)
  Sender: FDA-Public Use
  Company Number: FR-BAYER-2017-128471

PATIENT
  Age: 31 Year
  Sex: Female

DRUGS (1)
  1. MIRENA [Suspect]
     Active Substance: LEVONORGESTREL
     Indication: CONTRACEPTION
     Dosage: 20 MCG/24HR, CONT
     Route: 015
     Dates: start: 200506, end: 200603

REACTIONS (10)
  - Weight increased [Recovered/Resolved]
  - Loss of libido [Recovered/Resolved]
  - Metrorrhagia [Recovered/Resolved]
  - Breast pain [Recovered/Resolved]
  - Anxiety [Recovered/Resolved]
  - Diffuse alopecia [Recovered/Resolved]
  - Ovarian cyst [Unknown]
  - Uterine leiomyoma [Recovered/Resolved]
  - Vulvovaginal pain [Recovered/Resolved]
  - Aggression [Recovered/Resolved]

NARRATIVE: CASE EVENT DATE: 2006
